FAERS Safety Report 6682329-X (Version None)
Quarter: 2010Q2

REPORT INFORMATION
  Report Type: 
  Country: None (occurrence: None)
  Receive Date: 20100415
  Receipt Date: 20100408
  Transmission Date: 20101027
  Serious: Yes (Hospitalization)
  Sender: FDA-Public Use
  Company Number: JP-ABBOTT-10P-087-0626289-00

PATIENT
  Sex: Male
  Weight: 45 kg

DRUGS (16)
  1. HUMIRA [Suspect]
     Indication: RHEUMATOID ARTHRITIS
     Route: 058
     Dates: start: 20100116, end: 20100116
  2. HUMIRA [Suspect]
     Route: 058
     Dates: start: 20100217
  3. PREDNISOLONE [Suspect]
     Indication: RHEUMATOID ARTHRITIS
     Route: 048
     Dates: start: 20090523, end: 20090605
  4. PREDNISOLONE [Suspect]
     Dates: start: 20090606, end: 20090627
  5. PREDNISOLONE [Suspect]
     Dates: start: 20090628, end: 20090703
  6. PREDNISOLONE [Suspect]
     Dates: start: 20090704, end: 20090731
  7. PREDNISOLONE [Suspect]
     Dates: start: 20090801, end: 20090828
  8. PREDNISOLONE [Suspect]
     Dates: start: 20090829, end: 20090919
  9. PREDNISOLONE [Suspect]
     Dates: start: 20090920, end: 20091002
  10. PREDNISOLONE [Suspect]
     Dosage: 15MG AND 12.5MG ALTERNATELY
     Dates: start: 20091003, end: 20091016
  11. PREDNISOLONE [Suspect]
     Dates: start: 20091017
  12. TIOPRONIN [Concomitant]
     Indication: RHEUMATOID ARTHRITIS
     Route: 048
     Dates: start: 20090801
  13. BUCILLAMINE [Concomitant]
     Indication: RHEUMATOID ARTHRITIS
     Route: 048
     Dates: start: 20091030
  14. SODIUM RISEDRONATE HYDRATE [Concomitant]
     Indication: OSTEOPOROSIS
     Dosage: ON SUNDAY
     Route: 048
     Dates: start: 20091205
  15. ITRACONAZOLE [Concomitant]
     Indication: ORAL CANDIDIASIS
     Route: 048
     Dates: start: 20091205, end: 20100202
  16. KETOPROFEN [Concomitant]
     Indication: RHEUMATOID ARTHRITIS
     Dosage: 70 SHEETS 1 IN 1 D
     Route: 062
     Dates: start: 20090523

REACTIONS (3)
  - ANAEMIA [None]
  - GASTRIC ULCER [None]
  - HAEMATEMESIS [None]
